FAERS Safety Report 16998838 (Version 1)
Quarter: 2019Q4

REPORT INFORMATION
  Report Type: Spontaneous
  Country: GB (occurrence: GB)
  Receive Date: 20191106
  Receipt Date: 20191106
  Transmission Date: 20200122
  Serious: Yes (Other)
  Sender: FDA-Public Use
  Company Number: GB-TEVA-2019-GB-1131156

PATIENT
  Age: 28 Year
  Sex: Female
  Weight: 86 kg

DRUGS (6)
  1. CERAZETTE [Concomitant]
     Dosage: 1 DOSAGE FORMS
     Dates: start: 20190729
  2. CLOBETASONE BUTYRATE [Concomitant]
     Active Substance: CLOBETASONE BUTYRATE
     Dosage: APPLY 1-2 TIMES/DAY
     Dates: start: 20190924
  3. QUETIAPINE. [Concomitant]
     Active Substance: QUETIAPINE
     Dosage: NIGHT, 1DOSAGE FORMS
     Dates: start: 20190529, end: 20191007
  4. DIAZEPAM. [Concomitant]
     Active Substance: DIAZEPAM
     Indication: PANIC ATTACK
     Dosage: TAKE ONE OR TWO AS REQUIRED
     Dates: start: 20190529
  5. SERTRALINE [Concomitant]
     Active Substance: SERTRALINE HYDROCHLORIDE
     Dosage: IN TOTAL 150MG, 1 DOSAGE FORMS
     Dates: start: 20190529
  6. QUETIAPINE. [Suspect]
     Active Substance: QUETIAPINE
     Dosage: NIGHT, 100 MG PER DAY
     Dates: start: 20190529

REACTIONS (3)
  - Blister [Unknown]
  - Rash [Recovering/Resolving]
  - Pruritus [Unknown]

NARRATIVE: CASE EVENT DATE: 20191007
